FAERS Safety Report 8721664 (Version 3)
Quarter: 2012Q4

REPORT INFORMATION
  Report Type: 
  Country: US (occurrence: US)
  Receive Date: 20120814
  Receipt Date: 20121207
  Transmission Date: 20130627
  Serious: Yes (Other)
  Sender: FDA-Public Use
  Company Number: US-BAYER-2012-080850

PATIENT
  Age: 44 Year
  Sex: Female
  Weight: 65.76 kg

DRUGS (7)
  1. YASMIN [Suspect]
     Dosage: UNK
     Dates: start: 20020612, end: 20020731
  2. ALPRAZOLAM [Concomitant]
     Indication: TREMOR
     Dosage: UNK
     Dates: start: 1994
  3. NSAID^S [Concomitant]
  4. ANTIBIOTICS [Concomitant]
  5. ZYRTEC [Concomitant]
  6. PYRIDIUM [Concomitant]
  7. BACTRIM [Concomitant]

REACTIONS (4)
  - Deep vein thrombosis [Recovered/Resolved]
  - Injury [Recovered/Resolved]
  - Pain [None]
  - Pain in extremity [Recovered/Resolved]
